FAERS Safety Report 7369173-5 (Version None)
Quarter: 2011Q1

REPORT INFORMATION
  Report Type: 
  Country: None (occurrence: None)
  Receive Date: 20110323
  Receipt Date: 20110322
  Transmission Date: 20110831
  Serious: No
  Sender: FDA-Public Use
  Company Number: US-PFIZER INC-2011063501

PATIENT
  Sex: Male

DRUGS (2)
  1. VISKEN [Concomitant]
     Indication: PAIN
     Dosage: 5 MG, AS NEEDED
  2. SUTENT [Suspect]
     Indication: RENAL CELL CARCINOMA
     Dosage: 50 MG, 1X/DAY
     Route: 048
     Dates: start: 20110311

REACTIONS (1)
  - DIARRHOEA [None]
